FAERS Safety Report 7816416-7 (Version None)
Quarter: 2011Q4

REPORT INFORMATION
  Report Type: 
  Country: None (occurrence: None)
  Receive Date: 20111017
  Receipt Date: 20111006
  Transmission Date: 20120403
  Serious: Yes (Other)
  Sender: FDA-Public Use
  Company Number: US-BRISTOL-MYERS SQUIBB COMPANY-15741432

PATIENT
  Age: 82 Year
  Sex: Male

DRUGS (6)
  1. MELOXICAM [Concomitant]
  2. LOVASTATIN [Concomitant]
  3. ALPRAZOLAM [Concomitant]
  4. CEFADROXIL [Concomitant]
     Dosage: 1DF=50 UNITS NOS
  5. XALATAN [Concomitant]
     Dosage: 1DF=0.005% DAILY TO THE EYES
  6. YERVOY [Suspect]
     Indication: MALIGNANT MELANOMA
     Dosage: 3 WEEKS AGO

REACTIONS (4)
  - RASH MACULAR [None]
  - PALMAR ERYTHEMA [None]
  - ROAD TRAFFIC ACCIDENT [None]
  - AMNESIA [None]
